FAERS Safety Report 8052368-5 (Version None)
Quarter: 2012Q1

REPORT INFORMATION
  Report Type: 
  Country: None (occurrence: None)
  Receive Date: 20120117
  Receipt Date: 20120117
  Transmission Date: 20120608
  Serious: No
  Sender: FDA-Public Use
  Company Number: None

PATIENT
  Age: 69 Year
  Sex: Female
  Weight: 86.09 kg

DRUGS (1)
  1. SUCCINYLCHOLINE CHLORIDE [Suspect]
     Dosage: 140 MG ONCE
     Dates: start: 20110719, end: 20110719

REACTIONS (2)
  - ENDOTRACHEAL INTUBATION COMPLICATION [None]
  - LETHARGY [None]
